FAERS Safety Report 7997879-3 (Version None)
Quarter: 2011Q4

REPORT INFORMATION
  Report Type: 
  Country: None (occurrence: None)
  Receive Date: 20111221
  Receipt Date: 20110426
  Transmission Date: 20120403
  Serious: No
  Sender: FDA-Public Use
  Company Number: US-PFIZER INC-K200800303

PATIENT
  Sex: Female
  Weight: 56.689 kg

DRUGS (3)
  1. CORGARD [Suspect]
     Dosage: 80 MG, 1X/DAY
     Route: 048
     Dates: start: 19830101, end: 20110401
  2. CORGARD [Suspect]
     Indication: MITRAL VALVE PROLAPSE
     Dosage: 40 MG, 1X/DAY
     Route: 048
     Dates: start: 19830101, end: 19830101
  3. CORGARD [Suspect]
     Dosage: 40MG, QAM
     Dates: start: 20110902

REACTIONS (24)
  - DYSPNOEA [None]
  - PALPITATIONS [None]
  - SKIN WARM [None]
  - ASTHENIA [None]
  - FEELING ABNORMAL [None]
  - URINARY RETENTION [None]
  - BLADDER DISCOMFORT [None]
  - DYSPEPSIA [None]
  - EYE DISORDER [None]
  - FATIGUE [None]
  - SOMNOLENCE [None]
  - BLOOD CHOLESTEROL INCREASED [None]
  - HYPOTENSION [None]
  - TOOTH DISCOLOURATION [None]
  - CHEST DISCOMFORT [None]
  - DYSGEUSIA [None]
  - CHILLS [None]
  - GLOSSODYNIA [None]
  - HEART RATE DECREASED [None]
  - ABDOMINAL PAIN UPPER [None]
  - FLANK PAIN [None]
  - OBSTRUCTIVE AIRWAYS DISORDER [None]
  - DIZZINESS [None]
  - BRONCHOSPASM [None]
